FAERS Safety Report 9626808 (Version 1)
Quarter: 2013Q4

REPORT INFORMATION
  Report Type: Spontaneous
  Country: US (occurrence: US)
  Receive Date: 20131016
  Receipt Date: 20131016
  Transmission Date: 20140711
  Serious: Yes (Other)
  Sender: FDA-Public Use
  Company Number: US-PFIZER INC-2013292277

PATIENT
  Age: 18 Year
  Sex: Male

DRUGS (2)
  1. PHENYTOIN [Suspect]
     Indication: CONVULSION
     Dosage: 400 MG, DAILY
  2. PHENYTOIN [Suspect]
     Dosage: 400 MG AND 500 MG ON ALTERNATE DAYS

REACTIONS (2)
  - Toxicity to various agents [Unknown]
  - Choreoathetosis [Recovered/Resolved]
